FAERS Safety Report 9403190 (Version 3)
Quarter: 2013Q4

REPORT INFORMATION
  Report Type: Spontaneous
  Country: IT (occurrence: IT)
  Receive Date: 20130716
  Receipt Date: 20131004
  Transmission Date: 20140711
  Serious: Yes (Hospitalization, Other)
  Sender: FDA-Public Use
  Company Number: IT-ELI_LILLY_AND_COMPANY-IT201307002287

PATIENT
  Age: 61 Year
  Sex: Male

DRUGS (8)
  1. HUMATROPE [Suspect]
     Indication: GROWTH HORMONE DEFICIENCY
     Dosage: 0.2MG DAILY
     Route: 058
     Dates: start: 20020101, end: 20130410
  2. SUSTANON /00593501/ [Suspect]
     Indication: SECONDARY HYPOGONADISM
     Dosage: 250 MG, CYCLICAL
     Route: 030
     Dates: start: 20010601, end: 20120201
  3. TESTO ENANT [Suspect]
     Indication: SECONDARY HYPOGONADISM
     Dosage: 250 MG, MONTHLY (1/M)
     Route: 030
     Dates: start: 20120201, end: 20130307
  4. CORTONE ACETATO [Concomitant]
     Dosage: 25MG TABLET
  5. LEVOTHYROXINE SODIUM [Concomitant]
  6. SIMVASTATIN [Concomitant]
  7. CHOLECALCIFEROL [Concomitant]
  8. CALCIUM CARBONATE [Concomitant]

REACTIONS (2)
  - Prostate cancer [Recovered/Resolved with Sequelae]
  - Hypochromic anaemia [Unknown]
